FAERS Safety Report 16909007 (Version 1)
Quarter: 2019Q4

REPORT INFORMATION
  Report Type: Spontaneous
  Country: US (occurrence: US)
  Receive Date: 20191011
  Receipt Date: 20191011
  Transmission Date: 20200122
  Serious: No
  Sender: FDA-Public Use
  Company Number: US-PFIZER INC-2019436941

PATIENT
  Age: 53 Year
  Sex: Female
  Weight: 58.97 kg

DRUGS (1)
  1. SUTENT [Suspect]
     Active Substance: SUNITINIB MALATE
     Indication: PANCREATIC CARCINOMA METASTATIC
     Dosage: 50 MG, CYCLIC(50MG, CAPSULE, BY MOUTH, ONCE DAILY FOR 14 DAYS, OFF 7)
     Route: 048
     Dates: start: 201907

REACTIONS (3)
  - Malaise [Recovered/Resolved]
  - Neoplasm progression [Unknown]
  - Oral pain [Recovered/Resolved]

NARRATIVE: CASE EVENT DATE: 201908
